FAERS Safety Report 4274548-7 (Version None)
Quarter: 2004Q1

REPORT INFORMATION
  Report Type: 
  Country: None (occurrence: None)
  Receive Date: 20040120
  Receipt Date: 20040116
  Transmission Date: 20041129
  Serious: Yes (Other)
  Sender: FDA-Public Use
  Company Number: NZ-ROCHE-356075

PATIENT
  Age: 42 Year
  Sex: Female
  Weight: 88 kg

DRUGS (2)
  1. XENICAL [Suspect]
     Indication: DRUG USE FOR UNKNOWN INDICATION
     Route: 048
  2. XENICAL [Suspect]
     Dosage: THE PATIENT REINTRODUCED THE MEDICATION AFTER FIRST SET OF THERAPY.
     Route: 048
     Dates: end: 20031205

REACTIONS (6)
  - BLISTER [None]
  - DERMATITIS [None]
  - LYMPHOCYTIC INFILTRATION [None]
  - PARAKERATOSIS [None]
  - PRURITUS [None]
  - SKIN OEDEMA [None]
